FAERS Safety Report 18120480 (Version 2)
Quarter: 2023Q2

REPORT INFORMATION
  Report Type: Spontaneous
  Country: US (occurrence: US)
  Receive Date: 20200806
  Receipt Date: 20230601
  Transmission Date: 20230722
  Serious: Yes (Hospitalization, Other)
  Sender: FDA-Public Use
  Company Number: US-ABBVIE-20K-163-3265434-00

PATIENT
  Age: 43 Year
  Sex: Male

DRUGS (3)
  1. DEPAKOTE [Suspect]
     Active Substance: DIVALPROEX SODIUM
     Indication: Mania
     Dosage: PATIENT HAD TO TAKE UNTIL PATIENT WAS 40 YEARS?FORM STRENGTH: 100 MILLIGRAM
     Route: 048
     Dates: start: 202207
  2. LURASIDONE [Concomitant]
     Active Substance: LURASIDONE
     Indication: Product used for unknown indication
  3. covid-19 vaccine [Concomitant]
     Indication: Product used for unknown indication

REACTIONS (16)
  - Bipolar disorder [Unknown]
  - Nasal congestion [Unknown]
  - Seizure [Not Recovered/Not Resolved]
  - Panic attack [Unknown]
  - Mania [Not Recovered/Not Resolved]
  - Hypersomnia [Recovered/Resolved]
  - Depression [Not Recovered/Not Resolved]
  - Chills [Recovered/Resolved]
  - Pain [Recovered/Resolved]
  - Decreased appetite [Recovered/Resolved]
  - Heart rate increased [Unknown]
  - Abdominal pain upper [Unknown]
  - COVID-19 [Unknown]
  - Fatigue [Unknown]
  - Poor quality sleep [Recovered/Resolved]
  - Oropharyngeal pain [Recovered/Resolved]

NARRATIVE: CASE EVENT DATE: 20221201
